FAERS Safety Report 4360725-3 (Version None)
Quarter: 2004Q2

REPORT INFORMATION
  Report Type: 
  Country: None (occurrence: None)
  Receive Date: 20040514
  Receipt Date: 20040507
  Transmission Date: 20050107
  Serious: Yes (Hospitalization)
  Sender: FDA-Public Use
  Company Number: 104390ISR

PATIENT
  Age: 42 Year
  Sex: Female

DRUGS (3)
  1. GLATIRAMER ACETATE [Suspect]
     Indication: MULTIPLE SCLEROSIS
     Dosage: 20 MILLIGRAM; SUBCUTANEOUS
     Route: 058
     Dates: start: 20040113, end: 20040427
  2. ACETAMINOPHEN [Concomitant]
  3. METHYLPREDNISOLONE SODIUM SUCCINATE [Concomitant]

REACTIONS (1)
  - CYTOLYTIC HEPATITIS [None]
